FAERS Safety Report 18818709 (Version 2)
Quarter: 2021Q1

REPORT INFORMATION
  Report Type: Report from Study
  Country: GB (occurrence: GB)
  Receive Date: 20210201
  Receipt Date: 20210222
  Transmission Date: 20210419
  Serious: Yes (Hospitalization)
  Sender: FDA-Public Use
  Company Number: NVSC2020GB320066

PATIENT
  Sex: Male

DRUGS (3)
  1. SANDOSTATIN LAR DEPOT [Suspect]
     Active Substance: OCTREOTIDE ACETATE
     Indication: NEUROENDOCRINE TUMOUR
     Dosage: 30 MG, Q4W
     Route: 030
  2. SANDOSTATIN LAR DEPOT [Suspect]
     Active Substance: OCTREOTIDE ACETATE
  3. SANDOSTATIN LAR DEPOT [Suspect]
     Active Substance: OCTREOTIDE ACETATE

REACTIONS (10)
  - Spinal cord neoplasm [Unknown]
  - Pain [Unknown]
  - Muscular weakness [Unknown]
  - Second primary malignancy [Unknown]
  - Cardiac discomfort [Unknown]
  - Nausea [Unknown]
  - Back pain [Unknown]
  - Gastric disorder [Unknown]
  - Arthralgia [Unknown]
  - Neuralgia [Unknown]
